FAERS Safety Report 5002290-3 (Version None)
Quarter: 2006Q2

REPORT INFORMATION
  Report Type: 
  Country: None (occurrence: None)
  Receive Date: 20060508
  Receipt Date: 20060427
  Transmission Date: 20061013
  Serious: Yes (Death, Hospitalization)
  Sender: FDA-Public Use
  Company Number: THYM-10925

PATIENT
  Sex: Male
  Weight: 70 kg

DRUGS (1)
  1. THYMOGLOBULIN [Suspect]
     Indication: BONE MARROW TRANSPLANT
     Dosage: 2.5 MG/KG ONCE IV
     Route: 042
     Dates: start: 20050324, end: 20050324

REACTIONS (2)
  - HEPATITIS FULMINANT [None]
  - INTRAVASCULAR HAEMOLYSIS [None]
